FAERS Safety Report 22096452 (Version 1)
Quarter: 2023Q1

REPORT INFORMATION
  Report Type: Spontaneous
  Country: GB (occurrence: GB)
  Receive Date: 20230315
  Receipt Date: 20230315
  Transmission Date: 20230418
  Serious: Yes (Hospitalization)
  Sender: FDA-Public Use
  Company Number: GB-BRISTOL-MYERS SQUIBB COMPANY-2023-037231

PATIENT
  Age: 74 Year
  Sex: Male

DRUGS (1)
  1. POMALIDOMIDE [Suspect]
     Active Substance: POMALIDOMIDE
     Indication: Product used for unknown indication
     Dosage: DOSE : 4MG;     FREQ : ^DAILY FOR 3 WEEKS THEN 7 DAYS RE^
     Route: 048

REACTIONS (1)
  - COVID-19 [Unknown]
